FAERS Safety Report 10714549 (Version 5)
Quarter: 2015Q4

REPORT INFORMATION
  Report Type: Spontaneous
  Country: DE (occurrence: DE)
  Receive Date: 20150115
  Receipt Date: 20151026
  Transmission Date: 20160304
  Serious: Yes (Other)
  Sender: FDA-Public Use
  Company Number: DE-ASTELLAS-2014US020478

PATIENT
  Age: 78 Year
  Sex: Female

DRUGS (2)
  1. VESIKUR [Suspect]
     Active Substance: SOLIFENACIN SUCCINATE
     Indication: URINARY INCONTINENCE
     Route: 048
     Dates: start: 20080808, end: 201412
  2. OVESTIN [Concomitant]
     Active Substance: ESTRIOL
     Indication: ATROPHY
     Dosage: UNK UNK, ONCE DAILY IN THE EVENING
     Route: 065
     Dates: start: 2005

REACTIONS (8)
  - Constipation [Not Recovered/Not Resolved]
  - Fatigue [Recovered/Resolved]
  - Faeces hard [Recovered/Resolved]
  - Somnolence [Recovered/Resolved]
  - Abdominal distension [Recovered/Resolved]
  - Bladder disorder [Not Recovered/Not Resolved]
  - Syncope [Recovered/Resolved]
  - Nausea [Recovered/Resolved]

NARRATIVE: CASE EVENT DATE: 20140101
